FAERS Safety Report 5070136-3 (Version None)
Quarter: 2006Q3

REPORT INFORMATION
  Report Type: 
  Country: None (occurrence: None)
  Receive Date: 20060731
  Receipt Date: 20060724
  Transmission Date: 20061208
  Serious: Yes (Death)
  Sender: FDA-Public Use
  Company Number: 056-C5013-06070633

PATIENT
  Age: 52 Year
  Sex: Male

DRUGS (1)
  1. CC-5013 (LENALIDOMIDE) (CAPSULES) [Suspect]
     Indication: MULTIPLE MYELOMA
     Dosage: 25 MG, 1 IN 1 D
     Dates: end: 20060721

REACTIONS (1)
  - DEATH [None]
